FAERS Safety Report 17483540 (Version 2)
Quarter: 2020Q2

REPORT INFORMATION
  Report Type: Spontaneous
  Country: US (occurrence: US)
  Receive Date: 20200302
  Receipt Date: 20200427
  Transmission Date: 20200713
  Serious: Yes (Other)
  Sender: FDA-Public Use
  Company Number: US-BAYER-2020-033438

PATIENT
  Age: 61 Year
  Sex: Female

DRUGS (4)
  1. MIRALAX [Suspect]
     Active Substance: POLYETHYLENE GLYCOL 3350
     Indication: GASTROINTESTINAL DISORDER
     Dosage: 1 DF, BID
     Route: 048
     Dates: start: 2016
  2. PREVACID [Concomitant]
     Active Substance: LANSOPRAZOLE
  3. CREON [Concomitant]
     Active Substance: PANCRELIPASE AMYLASE\PANCRELIPASE LIPASE\PANCRELIPASE PROTEASE
  4. OLIVE OIL [Concomitant]
     Active Substance: OLIVE OIL

REACTIONS (4)
  - Therapeutic response unexpected [Unknown]
  - Pleural thickening [None]
  - Breast cancer [None]
  - Dyspepsia [None]

NARRATIVE: CASE EVENT DATE: 2016
